FAERS Safety Report 9513189 (Version 1)
Quarter: 2013Q1

REPORT INFORMATION
  Report Type: Spontaneous
  Country: US (occurrence: None)
  Receive Date: 20130305
  Receipt Date: 20130305
  Transmission Date: 20140127
  Serious: Yes (Other)
  Sender: FDA-Public Use
  Company Number: 163-21880-12080183

PATIENT
  Age: 60 Year
  Sex: Female

DRUGS (3)
  1. REVLIMID (LENALIDOMIDE) (CAPSULES) [Suspect]
     Indication: PLASMA CELL MYELOMA
     Dosage: 10 MG, ON MONDAY, WEDNESDAY AND FRIDAY
     Route: 048
     Dates: start: 20120510
  2. CENTRUM SILVER (CENTRUM SILVER) [Concomitant]
  3. FERREX-150 (POLYSACCHARIDE-IRON COMPLEX) [Concomitant]

REACTIONS (1)
  - Drug dose omission [None]
